FAERS Safety Report 6330442-9 (Version None)
Quarter: 2009Q3

REPORT INFORMATION
  Report Type: 
  Country: None (occurrence: None)
  Receive Date: 20090826
  Receipt Date: 20090826
  Transmission Date: 20100115
  Serious: Yes (Other)
  Sender: FDA-Public Use
  Company Number: None

PATIENT
  Age: 17 Year
  Sex: Male
  Weight: 56.6996 kg

DRUGS (1)
  1. ZONISAMIDE CAPS 100 MG SANDOZ [Suspect]
     Indication: CONVULSION
     Dosage: 200 MG QHS PO
     Route: 048
     Dates: start: 20090710, end: 20090718

REACTIONS (2)
  - CONVULSION [None]
  - PRODUCT SUBSTITUTION ISSUE [None]
